FAERS Safety Report 9726800 (Version 2)
Quarter: 2014Q1

REPORT INFORMATION
  Report Type: Report from Study
  Country: US (occurrence: US)
  Receive Date: 20131203
  Receipt Date: 20140325
  Transmission Date: 20141002
  Serious: No
  Sender: FDA-Public Use
  Company Number: PHEH2013US024867

PATIENT
  Sex: Female

DRUGS (12)
  1. TASIGNA [Suspect]
     Indication: CHRONIC MYELOID LEUKAEMIA
     Dosage: 300 MG, Q12H
     Route: 048
     Dates: start: 20130716
  2. TASIGNA [Suspect]
     Dosage: 300 MG, BID
     Route: 048
  3. TRAMADOL HCL [Concomitant]
  4. TIZANIDINE HYDROCHLORIDE [Concomitant]
  5. HYDROCHLOROTHIAZIDE [Concomitant]
  6. ZOLPIDEM TARTATE [Concomitant]
  7. DOXEPIN [Concomitant]
  8. MULTI-VIT [Concomitant]
  9. PRILOSEC [Concomitant]
     Dosage: UNK UKN, UNK
  10. AZITHROMYCIN [Concomitant]
     Dosage: UNK UKN, UNK
  11. ONDANSETRON [Concomitant]
     Dosage: UNK UKN, UNK
  12. PREVIDENT [Concomitant]
     Dosage: UNK UKN, UNK

REACTIONS (6)
  - Genital abscess [Unknown]
  - Sinusitis [Unknown]
  - Arthralgia [Unknown]
  - Abdominal discomfort [Unknown]
  - Alopecia [Unknown]
  - Genital cyst [Unknown]
